FAERS Safety Report 8251754-8 (Version None)
Quarter: 2012Q2

REPORT INFORMATION
  Report Type: 
  Country: None (occurrence: None)
  Receive Date: 20120402
  Receipt Date: 20120322
  Transmission Date: 20120825
  Serious: Yes (Hospitalization)
  Sender: FDA-Public Use
  Company Number: CO-JNJFOC-20120307173

PATIENT
  Sex: Female
  Weight: 69 kg

DRUGS (1)
  1. PALIPERIDONE [Suspect]
     Indication: SCHIZOPHRENIA
     Route: 030
     Dates: start: 20120223, end: 20120223

REACTIONS (1)
  - PSYCHOTIC DISORDER [None]
